FAERS Safety Report 5835964-2 (Version None)
Quarter: 2008Q3

REPORT INFORMATION
  Report Type: 
  Country: None (occurrence: None)
  Receive Date: 20080806
  Receipt Date: 20080725
  Transmission Date: 20090109
  Serious: Yes (Other)
  Sender: FDA-Public Use
  Company Number: US-PFIZER INC-2007061746

PATIENT
  Sex: Male
  Weight: 157.9 kg

DRUGS (15)
  1. CHANTIX [Interacting]
     Indication: SMOKING CESSATION THERAPY
     Route: 048
  2. NICORETTE [Suspect]
  3. THORAZINE [Interacting]
     Indication: MENTAL DISORDER
     Route: 048
  4. LAMICTAL [Concomitant]
     Indication: MENTAL DISORDER
     Route: 048
  5. WELLBUTRIN [Concomitant]
     Indication: MENTAL DISORDER
     Route: 048
  6. ABILIFY [Concomitant]
     Indication: MENTAL DISORDER
     Route: 048
  7. STRATTERA [Concomitant]
     Indication: MENTAL DISORDER
     Route: 048
  8. LISINOPRIL [Concomitant]
     Route: 048
  9. INSULIN [Concomitant]
     Indication: TYPE 1 DIABETES MELLITUS
  10. ZOCOR [Concomitant]
     Indication: BLOOD CHOLESTEROL INCREASED
     Route: 048
  11. GEMFIBROZIL [Concomitant]
     Indication: LIPIDS INCREASED
     Route: 048
  12. SYNTHROID [Concomitant]
     Indication: HYPOTHYROIDISM
     Route: 048
  13. AMMONIUM LACTATE [Concomitant]
  14. BACLOFEN [Concomitant]
  15. COGENTIN [Concomitant]

REACTIONS (25)
  - ABNORMAL DREAMS [None]
  - ADVERSE DRUG REACTION [None]
  - ARTERIOSCLEROSIS [None]
  - ARTHRALGIA [None]
  - BACK PAIN [None]
  - COUGH [None]
  - DIZZINESS [None]
  - DRUG DEPENDENCE [None]
  - DRUG INTERACTION [None]
  - DRY MOUTH [None]
  - DYSGEUSIA [None]
  - DYSPNOEA EXERTIONAL [None]
  - FEELING ABNORMAL [None]
  - HALLUCINATION [None]
  - MANIA [None]
  - MOOD SWINGS [None]
  - MOVEMENT DISORDER [None]
  - MUSCLE DISORDER [None]
  - MUSCLE FATIGUE [None]
  - MYALGIA [None]
  - PELVIC PAIN [None]
  - SLEEP DISORDER [None]
  - SOMNOLENCE [None]
  - TOBACCO USER [None]
  - TOBACCO WITHDRAWAL SYMPTOMS [None]
